FAERS Safety Report 18781580 (Version 1)
Quarter: 2021Q1

REPORT INFORMATION
  Report Type: Spontaneous
  Country: US (occurrence: US)
  Receive Date: 20210125
  Receipt Date: 20210125
  Transmission Date: 20210419
  Serious: Yes (Disabling, Other)
  Sender: FDA-Public Use
  Company Number: None

PATIENT
  Age: 43 Year
  Sex: Female
  Weight: 81 kg

DRUGS (5)
  1. VITAMIN C [Concomitant]
     Active Substance: ASCORBIC ACID
  2. LEVOFLOXACIN. [Suspect]
     Active Substance: LEVOFLOXACIN
     Indication: EYE INFECTION
     Dates: start: 20200428, end: 20200512
  3. LEVOFLOXACIN. [Suspect]
     Active Substance: LEVOFLOXACIN
     Indication: CELLULITIS
     Dates: start: 20200428, end: 20200512
  4. MAGNESIUM [Concomitant]
     Active Substance: MAGNESIUM
  5. MULTIVITAMIN [Concomitant]
     Active Substance: VITAMINS

REACTIONS (5)
  - Loss of personal independence in daily activities [None]
  - Nightmare [None]
  - Arthralgia [None]
  - Anxiety [None]
  - Arthritis [None]

NARRATIVE: CASE EVENT DATE: 20200501
